FAERS Safety Report 7289172-1 (Version None)
Quarter: 2011Q1

REPORT INFORMATION
  Report Type: 
  Country: None (occurrence: None)
  Receive Date: 20110201
  Receipt Date: 20110119
  Transmission Date: 20110831
  Serious: Yes (Other)
  Sender: FDA-Public Use
  Company Number: KV201100011

PATIENT
  Age: 2 Year
  Sex: Male

DRUGS (1)
  1. EVAMIST [Suspect]
     Indication: ACCIDENTAL EXPOSURE

REACTIONS (3)
  - ACCIDENTAL EXPOSURE [None]
  - DEVELOPMENTAL DELAY [None]
  - BREAST MASS [None]
